FAERS Safety Report 13303277 (Version 1)
Quarter: 2017Q1

REPORT INFORMATION
  Report Type: Spontaneous
  Country: US (occurrence: US)
  Receive Date: 20170307
  Receipt Date: 20170307
  Transmission Date: 20170428
  Serious: No
  Sender: FDA-Public Use
  Company Number: US-MYLANLABS-2016M1049424

PATIENT
  Age: 59 Year
  Sex: Female
  Weight: 93.42 kg

DRUGS (1)
  1. LIDOCAINE PATCH [Suspect]
     Active Substance: LIDOCAINE
     Indication: PAIN
     Dosage: 1 DF, BID
     Route: 003
     Dates: start: 20161104, end: 201611

REACTIONS (5)
  - Application site discomfort [Unknown]
  - Product quality issue [Recovered/Resolved]
  - Skin irritation [Unknown]
  - Drug ineffective for unapproved indication [Recovered/Resolved]
  - Product adhesion issue [Recovered/Resolved]

NARRATIVE: CASE EVENT DATE: 2016
